FAERS Safety Report 24223271 (Version 1)
Quarter: 2024Q3

REPORT INFORMATION
  Report Type: Spontaneous
  Country: US (occurrence: None)
  Receive Date: 20240816
  Receipt Date: 20240816
  Transmission Date: 20241017
  Serious: Yes (Disabling, Other)
  Sender: Public
  Company Number: None

PATIENT
  Age: 72 Year
  Sex: Female
  Weight: 63.96 kg

DRUGS (3)
  1. CARBAMAZEPINE [Suspect]
     Active Substance: CARBAMAZEPINE
     Indication: Bipolar disorder
     Dosage: FREQUENCY ABOUT 3-4 TIMES DAILY TO ADD UP TO 700MG?DURATION A FEW YEARS
     Route: 048
     Dates: end: 20230504
  2. CARBAMAZEPINE [Suspect]
     Active Substance: CARBAMAZEPINE
     Indication: Major depression
  3. CARBAMAZEPINE [Suspect]
     Active Substance: CARBAMAZEPINE
     Indication: Anxiety

REACTIONS (5)
  - Hypertension [None]
  - Balance disorder [None]
  - Fall [None]
  - Head injury [None]
  - Brain injury [None]
